FAERS Safety Report 15356575 (Version 1)
Quarter: 2018Q3

REPORT INFORMATION
  Report Type: Spontaneous
  Country: DE (occurrence: DE)
  Receive Date: 20180906
  Receipt Date: 20180906
  Transmission Date: 20181010
  Serious: Yes (Other)
  Sender: FDA-Public Use
  Company Number: DE-009507513-1808DEU013532

PATIENT
  Age: 49 Year
  Sex: Female

DRUGS (3)
  1. IMPLANON [Suspect]
     Active Substance: ETONOGESTREL
     Dosage: 1 IMPLANT, UNK
     Route: 059
     Dates: start: 20180524
  2. BISO LICH [Suspect]
     Active Substance: BISOPROLOL
     Indication: HYPERTENSION
     Dosage: UNK
  3. IMPLANON [Suspect]
     Active Substance: ETONOGESTREL
     Dosage: 1 IMPLANT, UNK
     Route: 059

REACTIONS (2)
  - Atrial fibrillation [Unknown]
  - Hypertension [Unknown]
